FAERS Safety Report 23840970 (Version 1)
Quarter: 2024Q2

REPORT INFORMATION
  Report Type: Spontaneous
  Country: IT (occurrence: IT)
  Receive Date: 20240510
  Receipt Date: 20240510
  Transmission Date: 20240716
  Serious: Yes (Hospitalization)
  Sender: FDA-Public Use
  Company Number: None

PATIENT
  Age: 40 Year
  Sex: Male

DRUGS (1)
  1. LORAZEPAM [Suspect]
     Active Substance: LORAZEPAM
     Indication: Intentional self-injury
     Dosage: DOSAGE: 20 MG/ML THE PATIENT HAS TAKEN 8 BOTTLES OF LORAZEPAM
     Route: 048
     Dates: start: 20240206, end: 20240206

REACTIONS (4)
  - Toxicity to various agents [Recovered/Resolved]
  - Malaise [Unknown]
  - Drug abuse [Recovered/Resolved]
  - Confusional state [Unknown]

NARRATIVE: CASE EVENT DATE: 20240206
